FAERS Safety Report 22218797 (Version 1)
Quarter: 2023Q2

REPORT INFORMATION
  Report Type: Spontaneous
  Country: US (occurrence: None)
  Receive Date: 20230415
  Receipt Date: 20230415
  Transmission Date: 20230721
  Serious: No
  Sender: FDA-Public Use
  Company Number: None

PATIENT
  Age: 33 Year
  Sex: Female
  Weight: 85.5 kg

DRUGS (1)
  1. VIVITROL [Suspect]
     Active Substance: NALTREXONE
     Indication: Alcoholism
     Dosage: OTHER FREQUENCY : MONTHLY;?
     Route: 030
     Dates: start: 20230403

REACTIONS (11)
  - Nausea [None]
  - Dizziness [None]
  - Decreased appetite [None]
  - Abdominal pain upper [None]
  - Diarrhoea [None]
  - Fatigue [None]
  - Headache [None]
  - Pain [None]
  - Injection site bruising [None]
  - Injection site swelling [None]
  - Mass [None]

NARRATIVE: CASE EVENT DATE: 20230411
